FAERS Safety Report 5475856-4 (Version None)
Quarter: 2007Q4

REPORT INFORMATION
  Report Type: 
  Country: None (occurrence: None)
  Receive Date: 20071001
  Receipt Date: 20070913
  Transmission Date: 20080405
  Serious: Yes (Hospitalization)
  Sender: FDA-Public Use
  Company Number: S07-CAN-03433-01

PATIENT
  Age: 64 Year
  Sex: Male

DRUGS (4)
  1. CITALOPRAM HYDROBROMIDE [Suspect]
     Indication: BIPOLAR DISORDER
     Dosage: 20 MG QD PO
     Route: 048
     Dates: end: 20070101
  2. CITALOPRAM HYDROBROMIDE [Suspect]
     Indication: BIPOLAR DISORDER
     Dosage: 20 MG QD PO
     Route: 048
     Dates: start: 20070101
  3. CITALOPRAM HYDROBROMIDE [Suspect]
     Indication: BIPOLAR DISORDER
     Dosage: 10 MG QD PO
     Route: 048
  4. VALPROIC ACID [Concomitant]

REACTIONS (5)
  - HERNIA [None]
  - LARYNGITIS [None]
  - PNEUMONIA [None]
  - RESPIRATORY DISTRESS [None]
  - SWELLING [None]
